FAERS Safety Report 6716445-0 (Version None)
Quarter: 2010Q2

REPORT INFORMATION
  Report Type: 
  Country: None (occurrence: None)
  Receive Date: 20100507
  Receipt Date: 20100429
  Transmission Date: 20101027
  Serious: Yes (Other)
  Sender: FDA-Public Use
  Company Number: US-ROCHE-693461

PATIENT
  Sex: Female
  Weight: 78.9 kg

DRUGS (9)
  1. CAPECITABINE [Suspect]
     Indication: RECTAL CANCER
     Route: 048
     Dates: start: 20080521, end: 20080929
  2. CAPECITABINE [Suspect]
     Dosage: EVERY 14 DAYS.
     Route: 048
     Dates: start: 20100212, end: 20100321
  3. OXALIPLATIN [Suspect]
     Indication: RECTAL CANCER
     Dosage: DOSE: 160
     Route: 042
     Dates: start: 20080521, end: 20080929
  4. OXALIPLATIN [Suspect]
     Route: 042
     Dates: start: 20100218
  5. LYRICA [Concomitant]
     Indication: NEUROPATHY PERIPHERAL
     Route: 048
     Dates: start: 20081102
  6. ZOFRAN [Concomitant]
     Indication: VOMITING
     Route: 048
     Dates: start: 20080521
  7. HYDROCHLOROTHIAZIDE [Concomitant]
     Indication: FLUID RETENTION
     Dosage: PRN
     Route: 048
     Dates: start: 20080818
  8. K-DUR [Concomitant]
     Route: 048
     Dates: start: 20080724
  9. FLUOROURACIL [Concomitant]
     Dosage: 6 CYCLES
     Dates: start: 20080421

REACTIONS (1)
  - MALIGNANT NEOPLASM PROGRESSION [None]
